FAERS Safety Report 6842486-9 (Version None)
Quarter: 2010Q3

REPORT INFORMATION
  Report Type: 
  Country: None (occurrence: None)
  Receive Date: 20100714
  Receipt Date: 20071123
  Transmission Date: 20110219
  Serious: No
  Sender: FDA-Public Use
  Company Number: US-PFIZER INC-2007062890

PATIENT
  Sex: Female
  Weight: 52.16 kg

DRUGS (7)
  1. CHANTIX [Suspect]
     Indication: SMOKING CESSATION THERAPY
     Dates: start: 20070715
  2. PAXIL [Concomitant]
  3. VERAPAMIL [Concomitant]
  4. PRAVACHOL [Concomitant]
  5. KLONOPIN [Concomitant]
  6. DOXEPIN HCL [Concomitant]
  7. ESTROGENS [Concomitant]

REACTIONS (2)
  - MEMORY IMPAIRMENT [None]
  - VISION BLURRED [None]
